FAERS Safety Report 8893830 (Version 1)
Quarter: 2012Q4

REPORT INFORMATION
  Report Type: 
  Country: US (occurrence: US)
  Receive Date: 20121108
  Receipt Date: 20121108
  Transmission Date: 20130627
  Serious: No
  Sender: FDA-Public Use
  Company Number: US-PFIZER INC-2012277349

PATIENT
  Age: 57 Year
  Sex: Male
  Weight: 72.56 kg

DRUGS (1)
  1. NORVASC [Suspect]
     Indication: BLOOD PRESSURE HIGH
     Dosage: 5 mg, daily
     Dates: start: 2012, end: 2012

REACTIONS (1)
  - Prostatic specific antigen increased [Unknown]
